FAERS Safety Report 4699079-1 (Version None)
Quarter: 2005Q2

REPORT INFORMATION
  Report Type: 
  Country: None (occurrence: None)
  Receive Date: 20050624
  Receipt Date: 20050406
  Transmission Date: 20051028
  Serious: Yes (Hospitalization, Disabling)
  Sender: FDA-Public Use
  Company Number: US-ROCHE-401236

PATIENT
  Age: 18 Year
  Sex: Female
  Weight: 81.6 kg

DRUGS (3)
  1. ACCUTANE [Suspect]
     Route: 048
     Dates: start: 19941021, end: 19941215
  2. ACCUTANE [Suspect]
     Route: 048
     Dates: start: 19960610, end: 19960621
  3. DESOGEN [Concomitant]
     Route: 048
     Dates: start: 19891023

REACTIONS (44)
  - ABDOMINAL PAIN [None]
  - ABDOMINAL TENDERNESS [None]
  - ABSCESS [None]
  - ABSCESS DRAINAGE [None]
  - ACNE [None]
  - ANAL DISCOMFORT [None]
  - ANAL FISSURE [None]
  - ANORECTAL DISORDER [None]
  - APHTHOUS STOMATITIS [None]
  - COLITIS [None]
  - CONSTIPATION [None]
  - CROHN'S DISEASE [None]
  - DIARRHOEA [None]
  - DYSGEUSIA [None]
  - GASTROINTESTINAL DISORDER [None]
  - GASTROINTESTINAL OEDEMA [None]
  - HAEMATOCHEZIA [None]
  - HAEMORRHOIDS [None]
  - HERPES ZOSTER [None]
  - INFLAMMATORY BOWEL DISEASE [None]
  - INTESTINAL HAEMORRHAGE [None]
  - LEUKOPENIA [None]
  - MULTI-ORGAN DISORDER [None]
  - MUSCLE SPASMS [None]
  - NASOPHARYNGITIS [None]
  - NAUSEA [None]
  - OESOPHAGEAL CANDIDIASIS [None]
  - ORAL CANDIDIASIS [None]
  - PAIN IN EXTREMITY [None]
  - PAINFUL DEFAECATION [None]
  - PALPITATIONS [None]
  - PARAESTHESIA [None]
  - PERINEAL PAIN [None]
  - POLYURIA [None]
  - PROCTALGIA [None]
  - PRURITUS GENERALISED [None]
  - PSEUDOPOLYPOSIS [None]
  - PURULENCE [None]
  - RECTAL HAEMORRHAGE [None]
  - TENDERNESS [None]
  - THIRST [None]
  - URINARY TRACT INFECTION [None]
  - VOMITING [None]
  - WEIGHT DECREASED [None]
